FAERS Safety Report 14530493 (Version 3)
Quarter: 2018Q1

REPORT INFORMATION
  Report Type: Spontaneous
  Country: GB (occurrence: GB)
  Receive Date: 20180214
  Receipt Date: 20180222
  Transmission Date: 20180509
  Serious: Yes (Other)
  Sender: FDA-Public Use
  Company Number: GB-PFIZER INC-2018064808

PATIENT
  Age: 44 Year
  Sex: Male

DRUGS (2)
  1. ETRETINATE [Concomitant]
     Active Substance: ETRETINATE
     Dosage: 30 MG, DAILY (LOW DOSE)
     Route: 048
  2. METHOTREXATE SODIUM. [Suspect]
     Active Substance: METHOTREXATE SODIUM
     Dosage: UNK, WEEKLY (TOTAL CUMULATIVE DOSE OF METHOTREXATE WAS 1505 MG)
     Dates: start: 1976

REACTIONS (1)
  - Squamous cell carcinoma [Recovering/Resolving]
